FAERS Safety Report 6917562-2 (Version None)
Quarter: 2010Q3

REPORT INFORMATION
  Report Type: 
  Country: None (occurrence: None)
  Receive Date: 20100810
  Receipt Date: 20100803
  Transmission Date: 20110219
  Serious: Yes (Other)
  Sender: FDA-Public Use
  Company Number: US-BRISTOL-MYERS SQUIBB COMPANY-15205040

PATIENT
  Age: 56 Year
  Sex: Male

DRUGS (5)
  1. ORENCIA [Suspect]
     Indication: RHEUMATOID ARTHRITIS
     Dosage: THERAPY 2 YEARS
  2. METHOTREXATE [Concomitant]
  3. LORTAB [Concomitant]
  4. CALCIUM [Concomitant]
  5. FOLIC ACID [Concomitant]

REACTIONS (8)
  - CHOLECYSTITIS [None]
  - CONSTIPATION [None]
  - INFLUENZA LIKE ILLNESS [None]
  - NAUSEA [None]
  - PAIN [None]
  - STAPHYLOCOCCAL INFECTION [None]
  - TOOTH EXTRACTION [None]
  - WEIGHT DECREASED [None]
